FAERS Safety Report 22175329 (Version 1)
Quarter: 2023Q2

REPORT INFORMATION
  Report Type: Report from Study
  Country: US (occurrence: US)
  Receive Date: 20230405
  Receipt Date: 20230405
  Transmission Date: 20230721
  Serious: Yes (Disabling, Other)
  Sender: FDA-Public Use
  Company Number: US-ABBVIE-4716528

PATIENT
  Sex: Female
  Weight: 67.131 kg

DRUGS (5)
  1. SYNTHROID [Suspect]
     Active Substance: LEVOTHYROXINE SODIUM
     Indication: Hyperthyroidism
     Dosage: FORM STRENGTH: 100 MICROGRAM?START DATE TEXT: STARTED AROUND 1978-1979?DURATION TEXT: BEEN TAKING...
     Route: 048
  2. DIAZEPAM [Concomitant]
     Active Substance: DIAZEPAM
     Indication: Nervous system disorder
  3. TRAMADOL HCL [Concomitant]
     Active Substance: TRAMADOL HYDROCHLORIDE
     Indication: Back pain
  4. DIOVAN [Concomitant]
     Active Substance: VALSARTAN
     Indication: Blood pressure measurement
  5. PREGABALIN [Concomitant]
     Active Substance: PREGABALIN
     Indication: Back pain

REACTIONS (7)
  - Hip fracture [Unknown]
  - Limb asymmetry [Unknown]
  - Malaise [Unknown]
  - Pain [Recovering/Resolving]
  - Memory impairment [Unknown]
  - Pulmonary resection [Unknown]
  - Herpes zoster [Recovering/Resolving]

NARRATIVE: CASE EVENT DATE: 20200101
